FAERS Safety Report 7515205-0 (Version None)
Quarter: 2011Q2

REPORT INFORMATION
  Report Type: 
  Country: None (occurrence: None)
  Receive Date: 20110601
  Receipt Date: 20110526
  Transmission Date: 20111010
  Serious: Yes (Death)
  Sender: FDA-Public Use
  Company Number: PHHY2011JP45797

PATIENT
  Sex: Male

DRUGS (4)
  1. RASILEZ [Suspect]
     Route: 048
  2. LASIX [Concomitant]
     Route: 048
  3. LUPRAC [Concomitant]
     Route: 048
  4. ALDACTONE [Concomitant]
     Route: 048

REACTIONS (2)
  - DEATH [None]
  - HYPOKALAEMIA [None]
